FAERS Safety Report 12664297 (Version 1)
Quarter: 2016Q3

REPORT INFORMATION
  Report Type: Spontaneous
  Country: US (occurrence: US)
  Receive Date: 20160818
  Receipt Date: 20160818
  Transmission Date: 20161109
  Serious: No
  Sender: FDA-Public Use
  Company Number: US-ACTELION-A-US2016-130080

PATIENT
  Age: 62 Year
  Sex: Female

DRUGS (1)
  1. OPSUMIT [Suspect]
     Active Substance: MACITENTAN
     Indication: PULMONARY ARTERIAL HYPERTENSION
     Dosage: 10 MG, QD
     Route: 048
     Dates: start: 20151220

REACTIONS (3)
  - Urinary tract infection [Recovered/Resolved]
  - Upper-airway cough syndrome [Unknown]
  - Cough [Unknown]

NARRATIVE: CASE EVENT DATE: 20151228
